FAERS Safety Report 9842473 (Version 2)
Quarter: 2014Q1

REPORT INFORMATION
  Report Type: Spontaneous
  Country: US (occurrence: US)
  Receive Date: 20140124
  Receipt Date: 20140124
  Transmission Date: 20141002
  Serious: No
  Sender: FDA-Public Use
  Company Number: US-GILEAD-2011-0040791

PATIENT
  Age: 76 Year
  Sex: Male

DRUGS (11)
  1. RANEXA [Suspect]
     Indication: ANGINA PECTORIS
     Route: 048
     Dates: start: 20110510
  2. ZOLPIDEM [Concomitant]
     Dates: start: 20100401
  3. WARFARIN [Concomitant]
     Dates: start: 20100119
  4. VIAGRA [Concomitant]
     Dates: start: 20101005
  5. PRAVASTATIN [Concomitant]
     Dates: start: 20100810
  6. POTASSIUM CHLORIDE [Concomitant]
     Dates: start: 20100119
  7. NORVASC [Concomitant]
     Dates: start: 20100119
  8. NITROGLYCERIN [Concomitant]
     Dates: start: 20100119
  9. LISINOPRIL [Concomitant]
     Dates: start: 20100119
  10. FUROSEMIDE [Concomitant]
     Dates: start: 20100119
  11. COREG [Concomitant]
     Dates: start: 20101005

REACTIONS (1)
  - Pain in extremity [Not Recovered/Not Resolved]
